FAERS Safety Report 10138707 (Version 1)
Quarter: 2014Q2

REPORT INFORMATION
  Report Type: Spontaneous
  Country: US (occurrence: US)
  Receive Date: 20140429
  Receipt Date: 20140429
  Transmission Date: 20141212
  Serious: No
  Sender: FDA-Public Use
  Company Number: US-BAYER-2014-061988

PATIENT
  Age: 32 Year
  Sex: Female

DRUGS (1)
  1. MIRENA [Suspect]
     Indication: CONTRACEPTION
     Dosage: UNK
     Dates: start: 2012

REACTIONS (8)
  - Metrorrhagia [Unknown]
  - Menstruation delayed [Unknown]
  - Breast tenderness [Unknown]
  - Gastric dilatation [Unknown]
  - Somnolence [Unknown]
  - Nausea [Unknown]
  - Headache [Unknown]
  - Back pain [Unknown]
